FAERS Safety Report 9592366 (Version 1)
Quarter: 2013Q3

REPORT INFORMATION
  Report Type: Spontaneous
  Country: US (occurrence: None)
  Receive Date: 20130919
  Receipt Date: 20130919
  Transmission Date: 20140515
  Serious: No
  Sender: FDA-Public Use
  Company Number: M0-13-022

PATIENT
  Age: 84 Year
  Sex: Female

DRUGS (1)
  1. PROBENECID [Suspect]

REACTIONS (3)
  - Abdominal discomfort [None]
  - Nausea [None]
  - Tremor [None]
